FAERS Safety Report 4991868-9 (Version None)
Quarter: 2006Q2

REPORT INFORMATION
  Report Type: 
  Country: None (occurrence: None)
  Receive Date: 20060504
  Receipt Date: 20041013
  Transmission Date: 20061013
  Serious: Yes (Death, Hospitalization, Other)
  Sender: FDA-Public Use
  Company Number: US-MERCK-0410USA02194

PATIENT
  Age: 50 Year
  Sex: Male
  Weight: 88 kg

DRUGS (2)
  1. VIOXX [Suspect]
     Indication: PAIN
     Route: 048
     Dates: start: 20021101, end: 20021121
  2. VIOXX [Suspect]
     Indication: BACK INJURY
     Route: 048
     Dates: start: 20021101, end: 20021121

REACTIONS (16)
  - ABDOMINAL DISTENSION [None]
  - ADVERSE DRUG REACTION [None]
  - CARDIOMEGALY [None]
  - CELLULITIS [None]
  - CORONARY ARTERY THROMBOSIS [None]
  - ENDOCARDITIS BACTERIAL [None]
  - GASTRIC DISORDER [None]
  - GENERALISED OEDEMA [None]
  - HEPATIC FAILURE [None]
  - HYPOXIC ENCEPHALOPATHY [None]
  - MULTI-ORGAN FAILURE [None]
  - PITTING OEDEMA [None]
  - PNEUMONIA [None]
  - PULMONARY EMBOLISM [None]
  - RENAL FAILURE [None]
  - SEPSIS [None]
